FAERS Safety Report 11124137 (Version 2)
Quarter: 2015Q2

REPORT INFORMATION
  Report Type: Spontaneous
  Country: FR (occurrence: FR)
  Receive Date: 20150520
  Receipt Date: 20150520
  Transmission Date: 20150821
  Serious: Yes (Hospitalization)
  Sender: FDA-Public Use
  Company Number: FR-AUROBINDO-AUR-APL-2015-04278

PATIENT
  Age: 69 Year
  Sex: Male

DRUGS (8)
  1. GLUCOPHAGE [Concomitant]
     Active Substance: METFORMIN HYDROCHLORIDE
     Indication: PRODUCT USED FOR UNKNOWN INDICATION
     Dosage: 850 MG, TWO TIMES A DAY
     Route: 065
  2. LANTUS [Concomitant]
     Active Substance: INSULIN GLARGINE
     Indication: PRODUCT USED FOR UNKNOWN INDICATION
     Dosage: 42 IU, DAILY
     Route: 065
  3. INEGY [Suspect]
     Active Substance: EZETIMIBE\SIMVASTATIN
     Indication: PRODUCT USED FOR UNKNOWN INDICATION
     Dosage: UNK UNK, DAILY 10-40 MG
     Route: 048
     Dates: end: 20150326
  4. AMLOR [Suspect]
     Active Substance: AMLODIPINE BESYLATE
     Indication: PRODUCT USED FOR UNKNOWN INDICATION
     Dosage: 10 MG, ONCE A DAY
     Route: 048
  5. VALSARTAN AND HYDROCHLOROTHIAZIDE [Suspect]
     Active Substance: HYDROCHLOROTHIAZIDE\VALSARTAN
     Indication: PRODUCT USED FOR UNKNOWN INDICATION
     Dosage: UNK UNK, DAILY 160-25 MG
     Route: 048
     Dates: end: 20150326
  6. APIDRA [Concomitant]
     Active Substance: INSULIN GLULISINE
     Indication: PRODUCT USED FOR UNKNOWN INDICATION
     Dosage: 14 IU, 3 TIMES A DAY
     Route: 065
  7. TRIATEC                            /00885601/ [Concomitant]
     Active Substance: RAMIPRIL
     Indication: PRODUCT USED FOR UNKNOWN INDICATION
     Dosage: 10 MG, ONCE A DAY
     Route: 065
  8. KARDEGIC [Concomitant]
     Active Substance: ASPIRIN LYSINE
     Indication: PRODUCT USED FOR UNKNOWN INDICATION
     Dosage: 75 MG, ONCE A DAY
     Route: 048

REACTIONS (14)
  - Rhabdomyolysis [Unknown]
  - Blood creatine phosphokinase decreased [Unknown]
  - Orthostatic hypotension [Unknown]
  - Myalgia [Unknown]
  - Micturition urgency [Unknown]
  - Hyperkalaemia [Unknown]
  - Proteinuria [Unknown]
  - Dysuria [Unknown]
  - Gait disturbance [Unknown]
  - Amyotrophy [Unknown]
  - Arthralgia [Unknown]
  - Osteoarthritis [None]
  - Drug clearance decreased [None]
  - General physical health deterioration [Unknown]

NARRATIVE: CASE EVENT DATE: 201503
